FAERS Safety Report 8900388 (Version 2)
Quarter: 2012Q4

REPORT INFORMATION
  Report Type: 
  Country: US (occurrence: US)
  Receive Date: 20121109
  Receipt Date: 20121226
  Transmission Date: 20130627
  Serious: No
  Sender: FDA-Public Use
  Company Number: US-B.I. PHARMACEUTICALS,INC./RIDGEFIELD-2012-BP-27389BP

PATIENT
  Age: 66 Year
  Sex: Female
  Weight: 66 kg

DRUGS (5)
  1. PRADAXA [Suspect]
     Indication: CEREBROVASCULAR ACCIDENT PROPHYLAXIS
     Dosage: 300 mg
     Route: 048
     Dates: start: 20121010, end: 20121107
  2. PRADAXA [Suspect]
     Indication: ATRIAL FIBRILLATION
  3. FORTEO [Concomitant]
     Indication: OSTEOPOROSIS
     Dosage: 20 mg
     Route: 058
     Dates: start: 2012
  4. METOPROLOL [Concomitant]
     Indication: HEART RATE INCREASED
     Dosage: 50 mg
     Route: 048
     Dates: start: 2012
  5. ASPIRIN [Concomitant]
     Indication: RAYNAUD^S PHENOMENON
     Dosage: 81 mg
     Route: 048
     Dates: start: 2010

REACTIONS (4)
  - Chest discomfort [Recovered/Resolved]
  - Abdominal pain upper [Recovered/Resolved]
  - Dyspepsia [Recovered/Resolved]
  - Odynophagia [Recovered/Resolved]
